FAERS Safety Report 8462107-1 (Version None)
Quarter: 2012Q2

REPORT INFORMATION
  Report Type: 
  Country: None (occurrence: None)
  Receive Date: 20120625
  Receipt Date: 20120620
  Transmission Date: 20120825
  Serious: Yes (Other)
  Sender: FDA-Public Use
  Company Number: JP-PFIZER INC-2012149125

PATIENT
  Sex: Male

DRUGS (2)
  1. SUTENT [Suspect]
     Indication: METASTATIC RENAL CELL CARCINOMA
     Dosage: 12.5 MG, 1X/DAY, 4 WEEKS ON/2 WEEKS OFF
     Route: 048
  2. SUTENT [Suspect]
     Dosage: 12.5 MG, 1X/DAY, 3 DAYS ON FOLLOWED BY 2 DAYS OFF
     Route: 048
     Dates: start: 20120101

REACTIONS (8)
  - ECZEMA [None]
  - PENILE ABSCESS [None]
  - SKIN EXFOLIATION [None]
  - FURUNCLE [None]
  - PIGMENTATION DISORDER [None]
  - SKIN SWELLING [None]
  - DIARRHOEA [None]
  - MALAISE [None]
